FAERS Safety Report 8398436-X (Version None)
Quarter: 2012Q2

REPORT INFORMATION
  Report Type: 
  Country: None (occurrence: None)
  Receive Date: 20120531
  Receipt Date: 20120517
  Transmission Date: 20120825
  Serious: No
  Sender: FDA-Public Use
  Company Number: US-ENDO PHARMACEUTICALS INC.-OPCR20120604

PATIENT
  Sex: Male

DRUGS (3)
  1. OPANA ER [Suspect]
     Route: 048
     Dates: start: 20120401
  2. OPANA ER [Concomitant]
     Dosage: UNKNOWN
     Route: 048
     Dates: end: 20120401
  3. OPANA ER [Suspect]
     Indication: MULTIPLE SCLEROSIS
     Route: 048
     Dates: start: 20120401

REACTIONS (2)
  - FOREIGN BODY [None]
  - DRUG EFFECT DECREASED [None]
